FAERS Safety Report 17008115 (Version 1)
Quarter: 2019Q4

REPORT INFORMATION
  Report Type: Report from Study
  Country: CA (occurrence: CA)
  Receive Date: 20191108
  Receipt Date: 20191108
  Transmission Date: 20200122
  Serious: Yes (Other)
  Sender: FDA-Public Use
  Company Number: CA-ORION CORPORATION ORION PHARMA-TREX2019-5248

PATIENT
  Age: 38 Year
  Sex: Male

DRUGS (5)
  1. LEFLUNOMIDE. [Suspect]
     Active Substance: LEFLUNOMIDE
     Indication: PRODUCT USED FOR UNKNOWN INDICATION
     Route: 065
  2. COSENTYX [Suspect]
     Active Substance: SECUKINUMAB
     Route: 058
  3. METHOTREXATE (TRADE NAME UNKNOWN) [Suspect]
     Active Substance: METHOTREXATE
     Indication: PRODUCT USED FOR UNKNOWN INDICATION
     Route: 065
  4. COSENTYX [Suspect]
     Active Substance: SECUKINUMAB
     Indication: PSORIATIC ARTHROPATHY
     Route: 058
  5. ENBREL [Concomitant]
     Active Substance: ETANERCEPT
     Route: 065

REACTIONS (6)
  - Viral infection [Recovering/Resolving]
  - Lower respiratory tract infection [Recovering/Resolving]
  - Incorrect dose administered [Recovering/Resolving]
  - Sinus headache [Recovering/Resolving]
  - Abdominal pain [Recovering/Resolving]
  - Bronchitis [Recovering/Resolving]
